FAERS Safety Report 23779751 (Version 1)
Quarter: 2024Q2

REPORT INFORMATION
  Report Type: Spontaneous
  Country: CN (occurrence: CN)
  Receive Date: 20240424
  Receipt Date: 20240424
  Transmission Date: 20240716
  Serious: Yes (Other)
  Sender: FDA-Public Use
  Company Number: CN-BAYER-2024A061315

PATIENT
  Age: 51 Year
  Sex: Female
  Weight: 65 kg

DRUGS (2)
  1. ULTRAVIST [Suspect]
     Active Substance: IOPROMIDE
     Indication: Angiocardiogram
     Dosage: 50 ML, ONCE
     Route: 042
     Dates: start: 20240423, end: 20240423
  2. ULTRAVIST [Suspect]
     Active Substance: IOPROMIDE
     Indication: Coronary artery disease

REACTIONS (4)
  - Hemihypoaesthesia [Recovering/Resolving]
  - Vision blurred [Recovering/Resolving]
  - Erythema of eyelid [Recovering/Resolving]
  - Swelling of eyelid [Recovering/Resolving]

NARRATIVE: CASE EVENT DATE: 20240423
